FAERS Safety Report 8238731-8 (Version None)
Quarter: 2012Q1

REPORT INFORMATION
  Report Type: 
  Country: None (occurrence: None)
  Receive Date: 20120323
  Receipt Date: 20120309
  Transmission Date: 20120608
  Serious: Yes (Other)
  Sender: FDA-Public Use
  Company Number: ES-1190931

PATIENT
  Age: 50 Year
  Sex: Male

DRUGS (12)
  1. CEFTAZIDIMA [Concomitant]
  2. AMIKACINA [Concomitant]
  3. VANCOMICINA [Concomitant]
  4. LIDOCAINA [Concomitant]
  5. ACTOCORTINA [Concomitant]
  6. BUPIVACAINA [Concomitant]
  7. LIQUIFILM [Concomitant]
  8. VISCOAT [Concomitant]
  9. BSS [Concomitant]
  10. BETADINE [Concomitant]
  11. BETADINE [Concomitant]
  12. VIGAMOX [Suspect]
     Dosage: OPHTHALMIC
     Route: 047

REACTIONS (1)
  - ENDOPHTHALMITIS [None]
